FAERS Safety Report 10117655 (Version 2)
Quarter: 2014Q2

REPORT INFORMATION
  Report Type: Spontaneous
  Country: US (occurrence: US)
  Receive Date: 20140425
  Receipt Date: 20140425
  Transmission Date: 20141212
  Serious: No
  Sender: FDA-Public Use
  Company Number: US-GILEAD-2013-0075602

PATIENT
  Sex: Male

DRUGS (1)
  1. ATRIPLA [Suspect]
     Indication: PRODUCT USED FOR UNKNOWN INDICATION
     Dosage: UNK
     Dates: start: 20130517

REACTIONS (7)
  - Disturbance in attention [Unknown]
  - Attention deficit/hyperactivity disorder [Unknown]
  - Nail discolouration [Unknown]
  - Chromaturia [Unknown]
  - Unevaluable event [Unknown]
  - Dizziness [Unknown]
  - Flatulence [Unknown]
